FAERS Safety Report 10337306 (Version 2)
Quarter: 2014Q3

REPORT INFORMATION
  Report Type: Spontaneous
  Country: US (occurrence: US)
  Receive Date: 20140723
  Receipt Date: 20140801
  Transmission Date: 20150326
  Serious: Yes (Death, Life-Threatening, Hospitalization, Other)
  Sender: FDA-Public Use
  Company Number: US-MERCK-1407USA009795

PATIENT
  Age: 77 Year
  Sex: Female

DRUGS (1)
  1. NOXAFIL [Suspect]
     Active Substance: POSACONAZOLE
     Dosage: UNK
     Dates: start: 201407

REACTIONS (2)
  - Pleural effusion [Fatal]
  - Thoracic cavity drainage [Fatal]

NARRATIVE: CASE EVENT DATE: 20140718
